FAERS Safety Report 5346004-6 (Version None)
Quarter: 2007Q2

REPORT INFORMATION
  Report Type: 
  Country: None (occurrence: None)
  Receive Date: 20070605
  Receipt Date: 20070530
  Transmission Date: 20071010
  Serious: Yes (Death, Hospitalization)
  Sender: FDA-Public Use
  Company Number: AU-ELI_LILLY_AND_COMPANY-AU200705007609

PATIENT
  Age: 61 Year
  Sex: Female

DRUGS (1)
  1. XIGRIS [Suspect]
     Indication: SEPSIS
     Dosage: UNK, UNKNOWN
     Route: 042

REACTIONS (5)
  - CARDIOGENIC SHOCK [None]
  - COR PULMONALE [None]
  - HYPOVOLAEMIC SHOCK [None]
  - MULTI-ORGAN FAILURE [None]
  - SEPTIC SHOCK [None]
